FAERS Safety Report 20088675 (Version 1)
Quarter: 2021Q4

REPORT INFORMATION
  Report Type: Spontaneous
  Country: IT (occurrence: IT)
  Receive Date: 20211119
  Receipt Date: 20211119
  Transmission Date: 20220303
  Serious: Yes (Hospitalization)
  Sender: FDA-Public Use
  Company Number: IT-ABBVIE-21K-083-4163730-00

PATIENT
  Age: 64 Year
  Sex: Female

DRUGS (3)
  1. VALPROATE SODIUM [Suspect]
     Active Substance: VALPROATE SODIUM
     Indication: Schizoaffective disorder
     Route: 048
     Dates: start: 20151219, end: 20191219
  2. ZUCLOPENTHIXOL DECANOATE [Concomitant]
     Active Substance: ZUCLOPENTHIXOL DECANOATE
     Indication: Product used for unknown indication
  3. ZUCLOPENTHIXOL [Concomitant]
     Active Substance: ZUCLOPENTHIXOL
     Indication: Product used for unknown indication

REACTIONS (2)
  - Confusional state [Recovered/Resolved]
  - Sopor [Recovered/Resolved]

NARRATIVE: CASE EVENT DATE: 20191219
